FAERS Safety Report 9599120 (Version 1)
Quarter: 2013Q4

REPORT INFORMATION
  Report Type: Spontaneous
  Country: US (occurrence: US)
  Receive Date: 20131004
  Receipt Date: 20131004
  Transmission Date: 20140711
  Serious: No
  Sender: FDA-Public Use
  Company Number: US-AMGEN-USASP2013027872

PATIENT
  Age: 81 Year
  Sex: Female
  Weight: 48.98 kg

DRUGS (15)
  1. ENBREL [Suspect]
     Indication: PRODUCT USED FOR UNKNOWN INDICATION
     Dosage: 25 MG, 2 TIMES/WK
     Route: 058
  2. MODAFINIL [Concomitant]
     Dosage: 100 MG, UNK
  3. HYDROCORTISONE [Concomitant]
     Dosage: 2.5 %, UNK
  4. TEROCIN [Concomitant]
     Dosage: UNK
  5. FOLIC ACID [Concomitant]
     Dosage: UNK
  6. VITAMIN D                          /00107901/ [Concomitant]
     Dosage: 1000 UNIT, UNK
  7. DURAGESIC                          /00070401/ [Concomitant]
     Dosage: 100 MCG/H, UNK
  8. LOSARTAN POTASSIUM [Concomitant]
     Dosage: 100 MG, UNK
  9. FENTANYL CITRATE [Concomitant]
     Dosage: 1500 MUG, UNK
  10. OXYCODONE [Concomitant]
     Dosage: 5 MG, UNK
  11. NEXIUM                             /01479302/ [Concomitant]
     Dosage: 40 MG, UNK
  12. CITRACAL PLUS [Concomitant]
     Dosage: UNK
  13. FEXOFENADINE [Concomitant]
     Dosage: 180 MG, UNK
  14. METHOTREXATE [Concomitant]
     Dosage: 2.5 MG, UNK
  15. PREDNISONE [Concomitant]
     Dosage: 50 MG, UNK

REACTIONS (1)
  - Red blood cell sedimentation rate increased [Unknown]
